FAERS Safety Report 4544972-3 (Version None)
Quarter: 2005Q1

REPORT INFORMATION
  Report Type: 
  Country: None (occurrence: None)
  Receive Date: 20050104
  Receipt Date: 20041220
  Transmission Date: 20050727
  Serious: Yes (Other)
  Sender: FDA-Public Use
  Company Number: 2004000974

PATIENT
  Age: 69 Year
  Sex: Female
  Weight: 79.4 kg

DRUGS (3)
  1. ERLOTINIB HCL (ERLOTINIB HCL) [Suspect]
     Indication: NON-SMALL CELL LUNG CANCER
     Dosage: 150 MG (QD), ORAL
     Route: 048
     Dates: start: 20041124
  2. LATANOPROST [Concomitant]
  3. DIPIVEFRINE [Concomitant]

REACTIONS (5)
  - DRUG INTERACTION [None]
  - EYE PRURITUS [None]
  - OCULAR HYPERAEMIA [None]
  - RASH [None]
  - SKIN DISCOLOURATION [None]
